FAERS Safety Report 23579430 (Version 2)
Quarter: 2024Q2

REPORT INFORMATION
  Report Type: Spontaneous
  Country: JP (occurrence: JP)
  Receive Date: 20240229
  Receipt Date: 20240419
  Transmission Date: 20240715
  Serious: Yes (Other)
  Sender: FDA-Public Use
  Company Number: JP-ferring-EVA202000245FERRINGPH

PATIENT
  Age: 83 Year
  Sex: Male

DRUGS (18)
  1. DESMOPRESSIN [Suspect]
     Active Substance: DESMOPRESSIN
     Indication: Diabetes insipidus
     Dosage: UNK
     Route: 045
     Dates: start: 2016
  2. DESMOPRESSIN ACETATE [Suspect]
     Active Substance: DESMOPRESSIN ACETATE
     Indication: Diabetes insipidus
     Dosage: ALTERNATE DAY 60 UG ONCE DAILY AND 2 TABLETS ONCE DAILY
     Route: 065
  3. DESMOPRESSIN ACETATE [Suspect]
     Active Substance: DESMOPRESSIN ACETATE
     Dosage: 60 UG
     Route: 065
     Dates: start: 2016
  4. CALONAL [Concomitant]
     Active Substance: ACETAMINOPHEN
     Dosage: 400 MG, 2 TIMES DAILY
     Route: 065
  5. KETOPROFEN [Concomitant]
     Active Substance: KETOPROFEN
     Dosage: AS NEEDED
     Route: 065
  6. LEVOTHYROXINE [Concomitant]
     Active Substance: LEVOTHYROXINE\LEVOTHYROXINE SODIUM
     Dosage: SATURDAY, SUNDAY MORNING
     Route: 065
  7. CORTRIL [Concomitant]
     Active Substance: HYDROCORTISONE
     Dosage: 30 MG
     Route: 065
     Dates: start: 20200407
  8. CORTRIL [Concomitant]
     Active Substance: HYDROCORTISONE
     Dosage: 20 MG
     Route: 065
     Dates: start: 2010
  9. PREDNISOLONE VALERATE ACETATE [Concomitant]
     Active Substance: PREDNISOLONE VALERATE ACETATE
     Dosage: 1 TIME DAILY
     Route: 062
  10. VEGIN [Concomitant]
     Dosage: 1 TIME DAILY
     Route: 062
  11. ZINC OXIDE [Concomitant]
     Active Substance: ZINC OXIDE
     Dosage: 1 TIME DAILY
     Route: 062
  12. ASPIRIN [Concomitant]
     Active Substance: ASPIRIN
     Dosage: 100 MG, 1 TIME DAILY
     Route: 065
  13. LANSOPRAZOLE [Concomitant]
     Active Substance: LANSOPRAZOLE
     Dosage: 15 MG, 1 TIME DAILY
     Route: 065
  14. TELMISARTAN [Concomitant]
     Active Substance: TELMISARTAN
     Dosage: 80 MG, 1 TIME DAILY
     Route: 065
  15. CARVEDILOL [Concomitant]
     Active Substance: CARVEDILOL
     Dosage: 10 MG, 1 TIME DAILY
     Route: 065
  16. ROSUVASTATIN CALCIUM [Concomitant]
     Active Substance: ROSUVASTATIN CALCIUM
     Dosage: 5 MG, 1 TIME DAILY
     Route: 065
  17. FEBUXOSTAT [Concomitant]
     Active Substance: FEBUXOSTAT
     Dosage: 20 MG, 1 TIME DAILY
     Route: 065
  18. NIFEDIPINE [Concomitant]
     Active Substance: NIFEDIPINE
     Dosage: 20 MG, 2 TIMES DAILY
     Route: 065

REACTIONS (7)
  - Hyponatraemia [Unknown]
  - Hyponatraemia [Unknown]
  - Abdominal pain upper [Recovered/Resolved]
  - Cutaneous symptom [Recovered/Resolved]
  - Oedema due to cardiac disease [Unknown]
  - Labelled drug-disease interaction medication error [Unknown]
  - Contraindicated product administered [Unknown]
